FAERS Safety Report 11440728 (Version 1)
Quarter: 2015Q3

REPORT INFORMATION
  Report Type: Spontaneous
  Country: US (occurrence: US)
  Receive Date: 20150821
  Receipt Date: 20150821
  Transmission Date: 20151125
  Serious: No
  Sender: FDA-Public Use
  Company Number: US-ELI_LILLY_AND_COMPANY-US200708003092

PATIENT
  Sex: Female

DRUGS (3)
  1. CYMBALTA [Suspect]
     Active Substance: DULOXETINE HYDROCHLORIDE
     Indication: DEPRESSION
     Dosage: 60 MG, UNK
  2. LISINOPRIL. [Concomitant]
     Active Substance: LISINOPRIL
     Dosage: 10 MG, DAILY (1/D)
  3. GLYBURIDE. [Concomitant]
     Active Substance: GLYBURIDE
     Dosage: 10 MEQ, 2/D

REACTIONS (10)
  - Nausea [Unknown]
  - Constipation [Unknown]
  - Vomiting [Unknown]
  - Abdominal distension [Unknown]
  - Gastrointestinal disorder [Recovering/Resolving]
  - Dry mouth [Unknown]
  - Fatigue [Unknown]
  - Back pain [Unknown]
  - Insomnia [Unknown]
  - Abdominal pain upper [Unknown]

NARRATIVE: CASE EVENT DATE: 200706
